FAERS Safety Report 6641405-8 (Version None)
Quarter: 2010Q1

REPORT INFORMATION
  Report Type: 
  Country: None (occurrence: None)
  Receive Date: 20100318
  Receipt Date: 20100310
  Transmission Date: 20100710
  Serious: Yes (Other)
  Sender: FDA-Public Use
  Company Number: GR-GENENTECH-299118

PATIENT
  Age: 67 Year
  Sex: Female

DRUGS (3)
  1. RANIBIZUMAB [Suspect]
     Indication: MACULAR DEGENERATION
     Route: 031
  2. RANIBIZUMAB [Suspect]
     Indication: RETINAL PIGMENT EPITHELIAL TEAR
  3. RANIBIZUMAB [Suspect]
     Indication: DETACHMENT OF RETINAL PIGMENT EPITHELIUM

REACTIONS (1)
  - MACULAR HOLE [None]
